FAERS Safety Report 4497542-X (Version None)
Quarter: 2004Q4

REPORT INFORMATION
  Report Type: 
  Country: None (occurrence: None)
  Receive Date: 20041110
  Receipt Date: 20041102
  Transmission Date: 20050328
  Serious: Yes (Death)
  Sender: FDA-Public Use
  Company Number: US-JNJFOC-20040908827

PATIENT
  Age: 59 Year

DRUGS (11)
  1. ULTRACET [Suspect]
     Indication: DRUG USE FOR UNKNOWN INDICATION
     Route: 049
  2. LORAZEPAM [Suspect]
     Indication: DRUG USE FOR UNKNOWN INDICATION
     Route: 049
  3. NAPROXEN [Suspect]
     Indication: DRUG USE FOR UNKNOWN INDICATION
     Route: 049
  4. BELLADONNA/ERGOTAMINE/PHENOBARBITAL [Suspect]
     Indication: DRUG USE FOR UNKNOWN INDICATION
  5. LOSARTAN [Suspect]
     Indication: DRUG USE FOR UNKNOWN INDICATION
  6. QUININE [Suspect]
     Indication: DRUG USE FOR UNKNOWN INDICATION
  7. LEVOTHYROXINE SODIUM [Suspect]
     Indication: DRUG USE FOR UNKNOWN INDICATION
  8. HALOPERIDOL [Suspect]
     Indication: DRUG USE FOR UNKNOWN INDICATION
  9. OLANZAPINE [Suspect]
     Indication: DRUG USE FOR UNKNOWN INDICATION
  10. HYDROXYZINE [Suspect]
     Indication: DRUG USE FOR UNKNOWN INDICATION
  11. SERTRALINE HCL [Suspect]
     Indication: DRUG USE FOR UNKNOWN INDICATION

REACTIONS (10)
  - ACIDOSIS [None]
  - COMA [None]
  - COMPLETED SUICIDE [None]
  - HAEMODIALYSIS [None]
  - HYPOTENSION [None]
  - MENTAL STATUS CHANGES [None]
  - MULTI-ORGAN FAILURE [None]
  - MULTIPLE DRUG OVERDOSE INTENTIONAL [None]
  - RENAL FAILURE [None]
  - VOMITING [None]
